FAERS Safety Report 8160962-6 (Version None)
Quarter: 2012Q1

REPORT INFORMATION
  Report Type: 
  Country: None (occurrence: None)
  Receive Date: 20120223
  Receipt Date: 20120215
  Transmission Date: 20120608
  Serious: Yes (Hospitalization)
  Sender: FDA-Public Use
  Company Number: US-ACTELION-A-US2012-60890

PATIENT

DRUGS (4)
  1. TRACLEER [Suspect]
     Indication: PULMONARY ARTERIAL HYPERTENSION
     Dosage: UNK
     Route: 048
     Dates: start: 20110104
  2. VENTAVIS [Suspect]
     Indication: PULMONARY ARTERIAL HYPERTENSION
     Dosage: 5 UG, 5-7X/DAY
     Route: 055
     Dates: start: 20080806, end: 20120131
  3. SILDENAFIL [Concomitant]
  4. COUMADIN [Concomitant]

REACTIONS (4)
  - CARDIAC FAILURE [None]
  - VOMITING [None]
  - NAUSEA [None]
  - MALAISE [None]
